FAERS Safety Report 8371486-5 (Version None)
Quarter: 2012Q2

REPORT INFORMATION
  Report Type: 
  Country: None (occurrence: None)
  Receive Date: 20120518
  Receipt Date: 20120507
  Transmission Date: 20120825
  Serious: No
  Sender: FDA-Public Use
  Company Number: US-ASTRAZENECA-2012SE29184

PATIENT
  Age: 72 Year
  Sex: Female
  Weight: 76.2 kg

DRUGS (7)
  1. NEXIUM [Suspect]
     Route: 048
  2. COUMADIN [Concomitant]
  3. TOPROL-XL [Suspect]
     Indication: ATRIAL FIBRILLATION
     Route: 048
  4. PROPAFENONE HCL [Concomitant]
     Indication: CARDIAC FIBRILLATION
  5. TOPROL-XL [Suspect]
     Indication: HYPERTENSION
     Route: 048
  6. TOPROL-XL [Suspect]
     Route: 048
     Dates: start: 20120404
  7. TOPROL-XL [Suspect]
     Route: 048
     Dates: start: 20120404

REACTIONS (2)
  - PARAESTHESIA [None]
  - HYPOAESTHESIA [None]
